FAERS Safety Report 21694363 (Version 1)
Quarter: 2022Q4

REPORT INFORMATION
  Report Type: Spontaneous
  Country: US (occurrence: None)
  Receive Date: 20221206
  Receipt Date: 20221206
  Transmission Date: 20230113
  Serious: Yes (Life-Threatening, Hospitalization)
  Sender: FDA-Public Use
  Company Number: None

PATIENT
  Age: 94 Year
  Sex: Female

DRUGS (4)
  1. APIXABAN [Suspect]
     Active Substance: APIXABAN
  2. ASPIRIN [Suspect]
     Active Substance: ASPIRIN
  3. CLOPIDOGREL [Suspect]
     Active Substance: CLOPIDOGREL BISULFATE
  4. MEROPENEM [Suspect]
     Active Substance: MEROPENEM

REACTIONS (4)
  - Infection [None]
  - Documented hypersensitivity to administered product [None]
  - Skin exfoliation [None]
  - Contraindicated product administered [None]

NARRATIVE: CASE EVENT DATE: 20220802
